FAERS Safety Report 13544815 (Version 1)
Quarter: 2017Q2

REPORT INFORMATION
  Report Type: Spontaneous
  Country: US (occurrence: US)
  Receive Date: 20170515
  Receipt Date: 20170515
  Transmission Date: 20170830
  Serious: Yes (Life-Threatening, Hospitalization, Other)
  Sender: FDA-Public Use
  Company Number: US-GLAXOSMITHKLINE-US2017GSK069791

PATIENT
  Age: 53 Year
  Sex: Female

DRUGS (1)
  1. ADVAIR HFA [Suspect]
     Active Substance: FLUTICASONE PROPIONATE\SALMETEROL XINAFOATE
     Indication: CHRONIC OBSTRUCTIVE PULMONARY DISEASE

REACTIONS (7)
  - Vasodilatation [Unknown]
  - Hepatic cirrhosis [Unknown]
  - Malaise [Unknown]
  - Varices oesophageal [Unknown]
  - Hepatitis C [Unknown]
  - Hepatomegaly [Unknown]
  - Hepatic failure [Unknown]

NARRATIVE: CASE EVENT DATE: 201702
